FAERS Safety Report 6562040-6 (Version None)
Quarter: 2010Q1

REPORT INFORMATION
  Report Type: 
  Country: None (occurrence: None)
  Receive Date: 20100130
  Receipt Date: 20091111
  Transmission Date: 20100710
  Serious: Yes (Other)
  Sender: FDA-Public Use
  Company Number: US-ABBOTT-09P-163-0598955-00

PATIENT
  Sex: Female
  Weight: 90.8 kg

DRUGS (12)
  1. HUMIRA [Suspect]
     Indication: CROHN'S DISEASE
     Route: 058
     Dates: start: 20081201, end: 20090101
  2. HUMIRA [Suspect]
     Dates: start: 20090101
  3. ASACOL [Concomitant]
     Indication: CROHN'S DISEASE
  4. IMODIUM [Concomitant]
     Indication: DIARRHOEA
  5. BENADRYL [Concomitant]
     Indication: HYPERSENSITIVITY
  6. TYLENOL-500 [Concomitant]
     Indication: DRUG USE FOR UNKNOWN INDICATION
  7. EXCEDRIN (MIGRAINE) [Concomitant]
     Indication: MIGRAINE
  8. UNKNOWN EYE DROPS [Concomitant]
     Indication: DRUG USE FOR UNKNOWN INDICATION
  9. VITAMIN D3 [Concomitant]
     Indication: DRUG USE FOR UNKNOWN INDICATION
  10. CALCIUM [Concomitant]
     Indication: DRUG USE FOR UNKNOWN INDICATION
  11. LOVAZA [Concomitant]
     Indication: DRUG USE FOR UNKNOWN INDICATION
  12. ALEVE (CAPLET) [Concomitant]
     Indication: DRUG USE FOR UNKNOWN INDICATION

REACTIONS (9)
  - ARTHRALGIA [None]
  - ASTHMA [None]
  - BRONCHITIS [None]
  - CROHN'S DISEASE [None]
  - DRUG INEFFECTIVE [None]
  - DYSPNOEA [None]
  - INJECTION SITE PAIN [None]
  - PRURITUS [None]
  - URTICARIA [None]
